FAERS Safety Report 4867645-6 (Version None)
Quarter: 2005Q4

REPORT INFORMATION
  Report Type: 
  Country: None (occurrence: None)
  Receive Date: 20051222
  Receipt Date: 20051213
  Transmission Date: 20060501
  Serious: Yes (Hospitalization)
  Sender: FDA-Public Use
  Company Number: TAP2005Q02191

PATIENT
  Sex: 0

DRUGS (1)
  1. LUPRON DEPOT [Suspect]

REACTIONS (1)
  - RHABDOMYOLYSIS [None]
